FAERS Safety Report 21634549 (Version 1)
Quarter: 2022Q4

REPORT INFORMATION
  Report Type: Report from Study
  Country: US (occurrence: US)
  Receive Date: 20221123
  Receipt Date: 20221123
  Transmission Date: 20230113
  Serious: No
  Sender: FDA-Public Use
  Company Number: US-ABBVIE-22K-163-4413976-00

PATIENT
  Age: 58 Year
  Sex: Male

DRUGS (1)
  1. HUMIRA [Suspect]
     Active Substance: ADALIMUMAB
     Indication: Psoriatic arthropathy
     Dosage: CITRATE FREE
     Route: 058
     Dates: start: 20211001

REACTIONS (5)
  - Psoriatic arthropathy [Unknown]
  - Grip strength decreased [Unknown]
  - Drug ineffective [Unknown]
  - Swelling [Unknown]
  - COVID-19 [Unknown]

NARRATIVE: CASE EVENT DATE: 20220501
